FAERS Safety Report 14257896 (Version 1)
Quarter: 2017Q4

REPORT INFORMATION
  Report Type: Spontaneous
  Country: US (occurrence: None)
  Receive Date: 20171206
  Receipt Date: 20171206
  Transmission Date: 20180321
  Serious: Yes (Hospitalization)
  Sender: FDA-Public Use
  Company Number: None

PATIENT
  Age: 16 Year
  Sex: Male

DRUGS (12)
  1. VIGABATRIN. [Suspect]
     Active Substance: VIGABATRIN
     Indication: FOCAL DYSCOGNITIVE SEIZURES
     Route: 048
     Dates: start: 20170922
  2. VIGABATRIN. [Suspect]
     Active Substance: VIGABATRIN
     Indication: EPILEPSY
     Route: 048
     Dates: start: 20170922
  3. TOPIRAMATE. [Concomitant]
     Active Substance: TOPIRAMATE
  4. KEPPRA [Concomitant]
     Active Substance: LEVETIRACETAM
  5. VALPROIC ACID. [Concomitant]
     Active Substance: VALPROIC ACID
  6. PHOSPHA [Concomitant]
  7. LAMOTRIGINE. [Concomitant]
     Active Substance: LAMOTRIGINE
  8. POTASSIUM [Concomitant]
     Active Substance: POTASSIUM
  9. SINGULAIR [Concomitant]
     Active Substance: MONTELUKAST SODIUM
  10. ONFI [Concomitant]
     Active Substance: CLOBAZAM
  11. LEVETIRACETA [Concomitant]
  12. LANSOPRAZOLE. [Concomitant]
     Active Substance: LANSOPRAZOLE

REACTIONS (2)
  - Asthma [None]
  - Drug dose omission [None]

NARRATIVE: CASE EVENT DATE: 20171020
